FAERS Safety Report 9700436 (Version 2)
Quarter: 2013Q4

REPORT INFORMATION
  Report Type: Spontaneous
  Country: IT (occurrence: None)
  Receive Date: 20131119
  Receipt Date: 20131226
  Transmission Date: 20140711
  Serious: Yes (Hospitalization)
  Sender: FDA-Public Use
  Company Number: FK201304730

PATIENT
  Age: 74 Year
  Sex: Male

DRUGS (4)
  1. IRINOTECAN [Suspect]
     Indication: COLORECTAL CANCER METASTATIC
     Dosage: CYCLICAL, NOT OTHERWISE SPECIFIED
     Route: 042
     Dates: start: 20130826, end: 20130827
  2. AVASTIN [Suspect]
     Indication: COLORECTAL CANCER METASTATIC
     Dosage: CYCLICAL, NOT OTHERWISE SPECIFIED
     Route: 042
     Dates: start: 20130826, end: 20130827
  3. FLUOROURACILE [Suspect]
     Indication: COLORECTAL CANCER METASTATIC
     Dosage: CYCLICAL, NOT OTHERWISE SPECIFIED.
     Route: 042
     Dates: start: 20130827, end: 20130829
  4. CARDIOASPIRIN (ACETYLSALICYLIC ACID) [Concomitant]

REACTIONS (2)
  - Deep vein thrombosis [None]
  - Deep vein thrombosis [None]
